FAERS Safety Report 8563238-8 (Version None)
Quarter: 2012Q3

REPORT INFORMATION
  Report Type: 
  Country: None (occurrence: None)
  Receive Date: 20120802
  Receipt Date: 20120727
  Transmission Date: 20120928
  Serious: No
  Sender: FDA-Public Use
  Company Number: US-AMGEN-USASP2011055275

PATIENT
  Age: 47 Year
  Sex: Male

DRUGS (1)
  1. ENBREL [Suspect]
     Indication: PSORIASIS
     Dosage: 50 MG, 2 TIMES/WK
     Dates: start: 20110718, end: 20120201

REACTIONS (4)
  - DRUG EFFECT DECREASED [None]
  - SKIN PLAQUE [None]
  - FEELING ABNORMAL [None]
  - NASOPHARYNGITIS [None]
